FAERS Safety Report 13220257 (Version 4)
Quarter: 2017Q2

REPORT INFORMATION
  Report Type: Spontaneous
  Country: ES (occurrence: ES)
  Receive Date: 20170210
  Receipt Date: 20170413
  Transmission Date: 20170830
  Serious: Yes (Hospitalization)
  Sender: FDA-Public Use
  Company Number: ES-UNITED THERAPEUTICS-UNT-2017-001409

PATIENT
  Age: 2 Year
  Sex: Female
  Weight: 14.6 kg

DRUGS (4)
  1. PROLEUKIN [Suspect]
     Active Substance: ALDESLEUKIN
     Indication: NEUROBLASTOMA
     Dosage: 9.45 MILLION IU, UNK
     Route: 065
     Dates: start: 20170123, end: 20170126
  2. UNITUXIN [Suspect]
     Active Substance: DINUTUXIMAB
     Indication: NEUROBLASTOMA
     Dosage: 41.16 MG, UNK
     Route: 041
     Dates: start: 20170123, end: 20170126
  3. PROLEUKIN [Suspect]
     Active Substance: ALDESLEUKIN
     Dosage: 7.2 MILLION IU, UNK
     Route: 065
     Dates: start: 20170116, end: 20170119
  4. UNITUXIN [Suspect]
     Active Substance: DINUTUXIMAB
     Dosage: UNK
     Route: 041
     Dates: start: 20161226

REACTIONS (1)
  - Myelitis [Recovered/Resolved]

NARRATIVE: CASE EVENT DATE: 20170128
